FAERS Safety Report 10992411 (Version 2)
Quarter: 2015Q2

REPORT INFORMATION
  Report Type: Report from Study
  Country: JP (occurrence: JP)
  Receive Date: 20150406
  Receipt Date: 20150421
  Transmission Date: 20150821
  Serious: Yes (Hospitalization)
  Sender: FDA-Public Use
  Company Number: JP-TAKEDA-2015TJP003471

PATIENT
  Age: 47 Year
  Sex: Male
  Weight: 55.6 kg

DRUGS (8)
  1. SULPHASALAZINE [Suspect]
     Active Substance: SULFASALAZINE
     Indication: COLITIS ULCERATIVE
     Dosage: 1000 MG, TID
     Route: 048
     Dates: start: 20150124, end: 20150310
  2. MIYA-BM [Concomitant]
     Active Substance: CLOSTRIDIUM BUTYRICUM SPORES STRAIN M-55
     Indication: COLITIS ULCERATIVE
     Dosage: 1 G, TID
     Route: 048
     Dates: start: 20141118, end: 20150301
  3. VEDOLIZUMAB [Suspect]
     Active Substance: VEDOLIZUMAB
     Indication: COLITIS ULCERATIVE
     Dosage: 300 MG, UNK
     Route: 041
     Dates: start: 20140913, end: 20140913
  4. LEUKERIN [Concomitant]
     Active Substance: MERCAPTOPURINE
     Indication: COLITIS ULCERATIVE
     Dosage: 30 MG, QD
     Route: 048
     Dates: start: 20141213
  5. LOPEMIN [Concomitant]
     Active Substance: LOPERAMIDE HYDROCHLORIDE
     Indication: COLITIS ULCERATIVE
     Dosage: 1 MG, QD
     Route: 048
     Dates: start: 20141227
  6. VEDOLIZUMAB [Suspect]
     Active Substance: VEDOLIZUMAB
     Dosage: 300 MG, UNK
     Route: 041
     Dates: start: 20140927, end: 20140927
  7. VEDOLIZUMAB [Suspect]
     Active Substance: VEDOLIZUMAB
     Dosage: 300 MG, UNK
     Route: 041
     Dates: start: 20141025, end: 20141025
  8. PHELLOBERIN [Concomitant]
     Indication: COLITIS ULCERATIVE
     Dosage: 2 DF, TID
     Route: 048
     Dates: start: 20141118, end: 20150301

REACTIONS (1)
  - Pneumonia [Recovered/Resolved]

NARRATIVE: CASE EVENT DATE: 20150214
